FAERS Safety Report 4697782-0 (Version None)
Quarter: 2005Q2

REPORT INFORMATION
  Report Type: 
  Country: None (occurrence: None)
  Receive Date: 20050621
  Receipt Date: 20050610
  Transmission Date: 20051028
  Serious: Yes (Other)
  Sender: FDA-Public Use
  Company Number: 142146USA

PATIENT
  Age: 42 Year
  Sex: Female
  Weight: 58.514 kg

DRUGS (1)
  1. COPAXONE [Suspect]
     Indication: MULTIPLE SCLEROSIS
     Dates: start: 19990517, end: 20050217

REACTIONS (3)
  - GALLBLADDER DISORDER [None]
  - HEPATITIS [None]
  - WHITE BLOOD CELL COUNT INCREASED [None]
